FAERS Safety Report 15160435 (Version 4)
Quarter: 2018Q3

REPORT INFORMATION
  Report Type: Report from Study
  Country: US (occurrence: US)
  Receive Date: 20180718
  Receipt Date: 20180910
  Transmission Date: 20181010
  Serious: Yes (Death, Hospitalization)
  Sender: FDA-Public Use
  Company Number: US-ACTELION-A-US2018-175420

PATIENT
  Age: 78 Year
  Sex: Male
  Weight: 30.8 kg

DRUGS (12)
  1. OPSUMIT [Suspect]
     Active Substance: MACITENTAN
     Indication: PULMONARY HYPERTENSION
     Dosage: 10 MG, QD
     Route: 048
     Dates: start: 20180516, end: 20180625
  2. SILDENAFIL. [Concomitant]
     Active Substance: SILDENAFIL
     Dosage: 20 MG, TID
     Route: 049
  3. ADEMPAS [Concomitant]
     Active Substance: RIOCIGUAT
     Dosage: 2.5 MG, QD
  4. FUROSEMIDE. [Concomitant]
     Active Substance: FUROSEMIDE
     Dosage: 120 MG, TID
     Route: 042
  5. DUONEB [Concomitant]
     Active Substance: ALBUTEROL SULFATE\IPRATROPIUM BROMIDE
     Dosage: 3 ML, Q4HRS
     Route: 055
  6. LORAZEPAM. [Concomitant]
     Active Substance: LORAZEPAM
     Dosage: 1 MG, ONCE
     Route: 042
  7. DIGOXIN. [Concomitant]
     Active Substance: DIGOXIN
     Dosage: 0.125 MCG, QD
     Route: 048
  8. BUMEX [Concomitant]
     Active Substance: BUMETANIDE
  9. OMEPRAZOLE. [Concomitant]
     Active Substance: OMEPRAZOLE
     Dosage: 20 MG Q AM AND AC, UNK
     Route: 049
  10. HEPARIN [Concomitant]
     Active Substance: HEPARIN SODIUM
     Dosage: 5000 U, TID
     Route: 058
  11. INSULIN LISPRO [Concomitant]
     Active Substance: INSULIN LISPRO
     Dosage: 2?10 UNITS, Q6HRS
     Route: 058
  12. WARFARIN [Concomitant]
     Active Substance: WARFARIN

REACTIONS (17)
  - Respiratory arrest [Unknown]
  - Dyspnoea [Unknown]
  - Lung carcinoma cell type unspecified recurrent [Fatal]
  - Lethargy [Unknown]
  - Renal failure [Unknown]
  - Decreased appetite [Unknown]
  - Respiratory failure [Fatal]
  - Pulmonary hypertension [Fatal]
  - Chronic lymphocytic leukaemia [Fatal]
  - Pneumonia [Unknown]
  - Confusional state [Unknown]
  - Abdominal pain upper [Unknown]
  - Aspiration [Unknown]
  - Fluid overload [Unknown]
  - Dysphagia [Unknown]
  - Respiratory acidosis [Unknown]
  - Chronic obstructive pulmonary disease [Unknown]

NARRATIVE: CASE EVENT DATE: 20180625
